FAERS Safety Report 4842328-7 (Version None)
Quarter: 2005Q4

REPORT INFORMATION
  Report Type: 
  Country: None (occurrence: None)
  Receive Date: 20051129
  Receipt Date: 20051115
  Transmission Date: 20060501
  Serious: Yes (Other)
  Sender: FDA-Public Use
  Company Number: 2005156499

PATIENT
  Age: 42 Year
  Sex: Male

DRUGS (7)
  1. IRINOTECAN HCL [Suspect]
     Indication: KAPOSI'S SARCOMA
     Dosage: 75 MG/M*2 (DAY 1 AND 10, Q 3 WEEKS), INTRAVENOUS
     Route: 042
  2. LOPINAVIR (LOPINAVIR) [Suspect]
     Indication: KAPOSI'S SARCOMA
     Dosage: (400 MG, 2 IN 1 D), ORAL
     Route: 048
  3. RITONAVIR (RITONAVIR) [Suspect]
     Indication: KAPOSI'S SARCOMA
     Dosage: (135 MG, 2 IN 1 D), ORAL
     Route: 048
  4. ZIDOVUDINE [Concomitant]
  5. LAMIVUDINE [Concomitant]
  6. ONDASETRON (ONDANSETRON) [Concomitant]
  7. G-CSF (GRANULOCYTE COLONY STIMULATING FACTOR) [Concomitant]

REACTIONS (2)
  - LABORATORY TEST ABNORMAL [None]
  - NEUTROPENIA [None]
